FAERS Safety Report 14251345 (Version 2)
Quarter: 2018Q1

REPORT INFORMATION
  Report Type: Spontaneous
  Country: None (occurrence: US)
  Receive Date: 20171205
  Receipt Date: 20180111
  Transmission Date: 20180508
  Serious: No
  Sender: FDA-Public Use
  Company Number: US-ALLERMED LABORATORIES, INC.-2036692

PATIENT
  Age: 55 Year
  Sex: Female
  Weight: 98.18 kg

DRUGS (30)
  1. MULTIVITAMIN [Concomitant]
     Active Substance: VITAMINS
     Route: 048
  2. POLLENS - TREES, ALDER, RED ALNUS RUBRA [Suspect]
     Active Substance: ALNUS RUBRA POLLEN
     Route: 058
     Dates: start: 20160523
  3. POLLENS - TREES, BOXELDER/MAPLE MIX [Suspect]
     Active Substance: ACER NEGUNDO POLLEN\ACER RUBRUM POLLEN\ACER SACCHARUM POLLEN
     Route: 058
     Dates: start: 20160523
  4. POLLENS - TREES, ELM, AMERICAN ULMUS AMERICANA [Suspect]
     Active Substance: ULMUS AMERICANA POLLEN
     Route: 058
     Dates: start: 20160523
  5. POLLENS - TREES, MULBERRY, WHITE, MORUS ALBA [Suspect]
     Active Substance: MORUS ALBA POLLEN
     Route: 065
     Dates: start: 20160523
  6. POLLENS - WEEDS AND GARDEN PLANTS, GS PIGWEED MIX= [Suspect]
     Active Substance: AMARANTHUS HYBRIDUS POLLEN\AMARANTHUS PALMERI POLLEN\AMARANTHUS RETROFLEXUS POLLEN
     Route: 058
     Dates: start: 20160523
  7. POLLENS - TREES, WALNUT, BLACK JUGLANS NIGRA [Suspect]
     Active Substance: JUGLANS NIGRA POLLEN
     Route: 058
     Dates: start: 20160523
  8. POLLENS - TREES, ASH, OREGON, FRAXINUS LATIFOLIA [Suspect]
     Active Substance: FRAXINUS LATIFOLIA POLLEN
     Route: 058
     Dates: start: 20160523
  9. POLLENS - WEEDS AND GARDEN PLANTS, PLANTAIN, ENGLISH PLANTAGO LANCEOLATA [Suspect]
     Active Substance: PLANTAGO LANCEOLATA POLLEN
     Route: 058
     Dates: start: 20160523
  10. POLLENS - WEEDS AND GARDEN PLANTS, SAGEBRUSH, PRAIRIE, ARTEMISIA LUDOV [Suspect]
     Active Substance: ARTEMISIA LUDOVICIANA POLLEN
     Route: 058
     Dates: start: 20160523
  11. STANDARDIZED MITE, DERMATOPHAGOIDES PTERONYSSINUS [Suspect]
     Active Substance: DERMATOPHAGOIDES PTERONYSSINUS
     Route: 058
     Dates: start: 20160523
  12. FLUOROMETHOLONE. [Concomitant]
     Active Substance: FLUOROMETHOLONE
     Route: 047
  13. METOPROLOL. [Concomitant]
     Active Substance: METOPROLOL
     Route: 048
  14. POLLENS - TREES, OAK, WESTERN WHITE, QUERCUS GARRYANA [Suspect]
     Active Substance: QUERCUS GARRYANA POLLEN
     Route: 058
     Dates: start: 20160523
  15. STANDARDIZED MITE, DERMATOPHAGOIDES FARINAE [Suspect]
     Active Substance: DERMATOPHAGOIDES FARINAE
     Route: 058
     Dates: start: 20160523
  16. METFORMIN [Concomitant]
     Active Substance: METFORMIN HYDROCHLORIDE
     Route: 048
  17. ESTRADIOL. [Concomitant]
     Active Substance: ESTRADIOL
     Route: 060
  18. PROGESTERONE. [Concomitant]
     Active Substance: PROGESTERONE
     Route: 048
  19. ASTELIN [Concomitant]
     Active Substance: AZELASTINE HYDROCHLORIDE
     Route: 045
  20. MELATONIN [Concomitant]
     Active Substance: MELATONIN
     Route: 048
  21. STANDARDIZED BERMUDA GRASS [Suspect]
     Active Substance: CYNODON DACTYLON POLLEN
     Indication: RHINITIS ALLERGIC
     Route: 058
     Dates: start: 20160523
  22. POLLENS - TREES, COTTONWOOD, BLACK, POPULUS BALSAMIFERA SSP. TRICHOCAR [Suspect]
     Active Substance: POPULUS TRICHOCARPA POLLEN
     Route: 058
     Dates: start: 20160523
  23. POLLENS - WEEDS, DOCK/SORREL MIX [Suspect]
     Active Substance: RUMEX ACETOSELLA POLLEN\RUMEX CRISPUS POLLEN
     Route: 058
     Dates: start: 20160523
  24. POLLENS - WEEDS AND GARDEN PLANTS, LAMB QUARTERS CHENOPODIUM ALBUM [Suspect]
     Active Substance: CHENOPODIUM ALBUM POLLEN
     Route: 065
     Dates: start: 20160523
  25. LEVOTHYROXINE. [Concomitant]
     Active Substance: LEVOTHYROXINE
     Route: 048
  26. FLONASE [Concomitant]
     Active Substance: FLUTICASONE PROPIONATE
     Route: 045
  27. POLLENS - TREES, BIRCH, SPRING, BETULA OCCIDENTALIS [Suspect]
     Active Substance: BETULA OCCIDENTALIS POLLEN
     Route: 058
     Dates: start: 20160523
  28. POLLENS - TREES, WILLOW, ARROYO, SALIX LASIOLEPIS [Suspect]
     Active Substance: SALIX LASIOLEPIS POLLEN
     Route: 058
     Dates: start: 20160523
  29. POLLENS - GRASSES, GS K-O-R-T GRASS MIX [Suspect]
     Active Substance: AGROSTIS GIGANTEA POLLEN\DACTYLIS GLOMERATA POLLEN\PHLEUM PRATENSE POLLEN\POA PRATENSIS POLLEN
     Route: 058
     Dates: start: 20160523
  30. POLLENS - WEEDS AND GARDEN PLANTS, SHORT RAGWEED, AMBROSIA ARTEMISIIFOLIA [Suspect]
     Active Substance: AMBROSIA ARTEMISIIFOLIA POLLEN
     Dates: start: 20160523

REACTIONS (7)
  - Throat irritation [Recovered/Resolved]
  - Sneezing [Recovered/Resolved]
  - Ear pruritus [Recovered/Resolved]
  - Flushing [Recovered/Resolved]
  - Chest discomfort [Recovered/Resolved]
  - Eye pruritus [Recovered/Resolved]
  - Injection site reaction [Recovered/Resolved]

NARRATIVE: CASE EVENT DATE: 20170525
